FAERS Safety Report 6644479-3 (Version None)
Quarter: 2010Q1

REPORT INFORMATION
  Report Type: 
  Country: None (occurrence: None)
  Receive Date: 20100322
  Receipt Date: 20100304
  Transmission Date: 20100710
  Serious: Yes (Other)
  Sender: FDA-Public Use
  Company Number: US-ROCHE-692078

PATIENT
  Sex: Female
  Weight: 77.1 kg

DRUGS (1)
  1. CAPECITABINE [Suspect]
     Indication: BREAST CANCER
     Dosage: 2000 MG IN AM AND PM
     Route: 048
     Dates: start: 20100228, end: 20100304

REACTIONS (2)
  - SWOLLEN TONGUE [None]
  - TONGUE DISCOLOURATION [None]
